FAERS Safety Report 15412688 (Version 2)
Quarter: 2018Q4

REPORT INFORMATION
  Report Type: Spontaneous
  Country: IT (occurrence: IT)
  Receive Date: 20180921
  Receipt Date: 20181009
  Transmission Date: 20190204
  Serious: Yes (Hospitalization)
  Sender: FDA-Public Use
  Company Number: PHHY2018IT100240

PATIENT
  Age: 3 Year
  Sex: Male

DRUGS (6)
  1. BETAMETHASONE. [Suspect]
     Active Substance: BETAMETHASONE
     Indication: EAR INFECTION
     Dosage: UNK
     Route: 065
  2. CLARITHROMYCIN. [Suspect]
     Active Substance: CLARITHROMYCIN
     Indication: EAR INFECTION
     Route: 065
  3. CEFACLOR. [Suspect]
     Active Substance: CEFACLOR
     Indication: EAR INFECTION
     Route: 065
  4. NIFLUMIC ACID [Suspect]
     Active Substance: NIFLUMIC ACID
     Indication: EAR INFECTION
     Route: 065
  5. PARACETAMOL [Suspect]
     Active Substance: ACETAMINOPHEN
     Indication: EAR INFECTION
     Route: 065
  6. MORNIFLUMATE [Suspect]
     Active Substance: MORNIFLUMATE
     Indication: EAR INFECTION
     Route: 065

REACTIONS (1)
  - Urticaria [Unknown]
